FAERS Safety Report 5229792-9 (Version None)
Quarter: 2007Q1

REPORT INFORMATION
  Report Type: 
  Country: None (occurrence: None)
  Receive Date: 20070206
  Receipt Date: 20070131
  Transmission Date: 20070707
  Serious: Yes (Death, Other)
  Sender: FDA-Public Use
  Company Number: PHBS2007JP01965

PATIENT
  Age: 46 Year
  Sex: Male

DRUGS (2)
  1. CYCLOSPORINE [Suspect]
     Indication: STEM CELL TRANSPLANT
     Route: 065
  2. METHOTREXATE [Concomitant]
     Indication: STEM CELL TRANSPLANT

REACTIONS (10)
  - AMNESIA [None]
  - CONFUSIONAL STATE [None]
  - CONVULSION [None]
  - CSF VIRUS IDENTIFIED [None]
  - HEADACHE [None]
  - HUMAN HERPES VIRUS 6 SEROLOGY POSITIVE [None]
  - LEUKAEMIA RECURRENT [None]
  - MENINGOENCEPHALITIS HERPETIC [None]
  - PYREXIA [None]
  - RASH [None]
